FAERS Safety Report 6491855-8 (Version None)
Quarter: 2009Q4

REPORT INFORMATION
  Report Type: 
  Country: None (occurrence: None)
  Receive Date: 20091125
  Receipt Date: 20090729
  Transmission Date: 20100525
  Serious: Yes (Other)
  Sender: FDA-Public Use
  Company Number: 2009BH012149

PATIENT
  Age: 71 Year
  Sex: Male

DRUGS (11)
  1. DIANEAL [Suspect]
     Indication: PERITONEAL DIALYSIS
     Dosage: 11.6; EVERY DAY; IP
     Route: 033
     Dates: start: 20080101
  2. DIANEAL [Suspect]
     Indication: PERITONEAL DIALYSIS
     Dosage: 2 L; EVERY DAY; IP
     Route: 033
     Dates: start: 20080101
  3. COREG [Concomitant]
  4. COUMADIN [Concomitant]
  5. EPOGEN [Concomitant]
  6. EVENING PRIMROSE OIL [Concomitant]
  7. POTASSIUM CHLORIDE [Concomitant]
  8. MEGACE [Concomitant]
  9. LIPITOR [Concomitant]
  10. PHOSPHORUS [Concomitant]
  11. RENA-VITE [Concomitant]

REACTIONS (2)
  - PERITONEAL DIALYSIS COMPLICATION [None]
  - PERITONITIS BACTERIAL [None]
